FAERS Safety Report 6752029-6 (Version None)
Quarter: 2010Q2

REPORT INFORMATION
  Report Type: 
  Country: None (occurrence: None)
  Receive Date: 20100602
  Receipt Date: 20100518
  Transmission Date: 20101027
  Serious: Yes (Hospitalization, Disabling)
  Sender: FDA-Public Use
  Company Number: CA-MERCK-0806CAN00026

PATIENT
  Age: 65 Year
  Sex: Female
  Weight: 115 kg

DRUGS (10)
  1. COZAAR [Suspect]
     Indication: ESSENTIAL HYPERTENSION
     Route: 048
     Dates: start: 20080509, end: 20080501
  2. COZAAR [Suspect]
     Route: 048
     Dates: start: 20080601, end: 20080618
  3. ALBUTEROL [Concomitant]
     Route: 065
  4. ALLOPURINOL [Concomitant]
     Indication: GOUT
     Route: 065
  5. CALCIUM (UNSPECIFIED) [Concomitant]
     Indication: PROPHYLAXIS
     Route: 065
  6. VITAMIN D (UNSPECIFIED) [Concomitant]
     Indication: PROPHYLAXIS
     Route: 065
  7. FLUTICASONE PROPIONATE AND SALMETEROL XINAFOATE [Concomitant]
     Route: 065
  8. HYZAAR [Suspect]
     Indication: ESSENTIAL HYPERTENSION
     Route: 048
     Dates: start: 20080619, end: 20080910
  9. HYZAAR [Suspect]
     Route: 048
     Dates: start: 20080918
  10. HYDROCHLOROTHIAZIDE AND TRIAMTERENE [Concomitant]
     Route: 065
     Dates: start: 20060101, end: 20080509

REACTIONS (6)
  - AMYLOIDOSIS [None]
  - BLOOD CREATINE PHOSPHOKINASE INCREASED [None]
  - INFLAMMATION [None]
  - MULTIPLE MYELOMA [None]
  - PNEUMONIA [None]
  - RED BLOOD CELL SEDIMENTATION RATE INCREASED [None]
